FAERS Safety Report 8194674-X (Version None)
Quarter: 2012Q1

REPORT INFORMATION
  Report Type: 
  Country: None (occurrence: None)
  Receive Date: 20120308
  Receipt Date: 20110117
  Transmission Date: 20120608
  Serious: No
  Sender: FDA-Public Use
  Company Number: US-GLAXOSMITHKLINE-A0906479A

PATIENT
  Age: 22 Year
  Sex: Female

DRUGS (1)
  1. NICORETTE [Suspect]
     Indication: EX-TOBACCO USER
     Route: 002
     Dates: start: 20110101, end: 20110101

REACTIONS (2)
  - ABDOMINAL PAIN UPPER [None]
  - OROPHARYNGEAL PAIN [None]
